FAERS Safety Report 7226251-9 (Version None)
Quarter: 2011Q1

REPORT INFORMATION
  Report Type: 
  Country: None (occurrence: None)
  Receive Date: 20110114
  Receipt Date: 20110105
  Transmission Date: 20110831
  Serious: Yes (Other)
  Sender: FDA-Public Use
  Company Number: PHHO2010GB11031

PATIENT
  Sex: Female
  Weight: 77.8 kg

DRUGS (1)
  1. AFINITOR [Suspect]
     Indication: METASTATIC RENAL CELL CARCINOMA
     Dosage: 10 MG, QD
     Route: 048
     Dates: start: 20100615

REACTIONS (3)
  - HAEMATEMESIS [None]
  - BLOOD PRESSURE INCREASED [None]
  - EPISTAXIS [None]
